FAERS Safety Report 20466234 (Version 2)
Quarter: 2022Q2

REPORT INFORMATION
  Report Type: Spontaneous
  Country: US (occurrence: None)
  Receive Date: 20220213
  Receipt Date: 20220621
  Transmission Date: 20220721
  Serious: Yes (Other)
  Sender: FDA-Public Use
  Company Number: US-ROCHE-3019616

PATIENT
  Sex: Male

DRUGS (2)
  1. OCREVUS [Suspect]
     Active Substance: OCRELIZUMAB
     Indication: Multiple sclerosis
     Route: 042
     Dates: start: 20200523
  2. OCREVUS [Suspect]
     Active Substance: OCRELIZUMAB
     Dosage: DOSE INFUSE 600 MG IN 500 ML 0,9 % NS INTRAVENOUSLY AT 40 ML/HOUR AND INCREASE BY 40 ML/HOUR EVERY 3
     Route: 042
     Dates: start: 20200529

REACTIONS (3)
  - Multiple sclerosis relapse [Unknown]
  - Multiple sclerosis relapse [Unknown]
  - Gait disturbance [Unknown]
